FAERS Safety Report 7037015-3 (Version None)
Quarter: 2010Q4

REPORT INFORMATION
  Report Type: 
  Country: None (occurrence: None)
  Receive Date: 20101011
  Receipt Date: 20100927
  Transmission Date: 20110411
  Serious: Yes (Hospitalization)
  Sender: FDA-Public Use
  Company Number: US-ELI_LILLY_AND_COMPANY-US200910001275

PATIENT
  Sex: Male
  Weight: 74.83 kg

DRUGS (9)
  1. CYMBALTA [Suspect]
     Indication: MAJOR DEPRESSION
     Dosage: 60 MG, DAILY (1/D)
     Route: 048
     Dates: start: 20090819, end: 20090905
  2. ALCOHOL [Concomitant]
     Dosage: UNK, UNK
     Dates: start: 20090904, end: 20090904
  3. TYLENOL /SCH/ [Concomitant]
     Indication: HEADACHE
     Route: 048
     Dates: start: 19890101
  4. IBUPROFEN [Concomitant]
     Indication: BACK PAIN
     Dosage: 400 MG, AS NEEDED
     Route: 048
     Dates: start: 19890101
  5. IBUPROFEN [Concomitant]
     Dosage: 800 MG, 3/D
     Dates: start: 20090917
  6. MULTI-VITAMIN [Concomitant]
     Route: 048
  7. MULTI-VITAMIN [Concomitant]
     Dates: start: 20090916, end: 20090921
  8. MAALOX [Concomitant]
     Route: 048
     Dates: start: 20090101
  9. TRAMADOL [Concomitant]
     Dates: start: 20090920, end: 20090921

REACTIONS (13)
  - AGITATION [None]
  - ALCOHOL ABUSE [None]
  - ALCOHOLISM [None]
  - ANXIETY DISORDER [None]
  - DRUG INEFFECTIVE [None]
  - ENERGY INCREASED [None]
  - EUPHORIC MOOD [None]
  - HOMICIDAL IDEATION [None]
  - INSOMNIA [None]
  - MANIA [None]
  - NAUSEA [None]
  - SUICIDAL IDEATION [None]
  - WITHDRAWAL SYNDROME [None]
